FAERS Safety Report 9646155 (Version 1)
Quarter: 2013Q4

REPORT INFORMATION
  Report Type: Spontaneous
  Country: GB (occurrence: None)
  Receive Date: 20131024
  Receipt Date: 20131024
  Transmission Date: 20140711
  Serious: Yes (Other)
  Sender: FDA-Public Use
  Company Number: INT_00321_2013

PATIENT
  Age: 71 Year
  Sex: Male

DRUGS (23)
  1. MEROPENEM (MEROPENEM) [Suspect]
     Indication: ENDOCARDITIS BACTERIAL
     Dosage: 2 G 1X/8 HOURS INTRAVENOUS
     Route: 042
     Dates: start: 20130814
  2. VANCOMYCIN (VANCOMYCIN) [Suspect]
     Indication: ENDOCARDITIS BACTERIAL
     Dosage: 1 G 1X/12 HOURS INTRAVENOUS
     Route: 042
     Dates: start: 20130810, end: 20130810
  3. AMLODIPINE [Concomitant]
  4. BENZYDAMINE HYDROCHLRIDE [Concomitant]
  5. CARBOCISTEINE [Concomitant]
  6. CASPOFUNGIN [Concomitant]
  7. CHLORPHENAMINE MALEATE [Concomitant]
  8. DEXAMETHASONE [Concomitant]
  9. ENOXAPARIN [Concomitant]
  10. FERROUS FUMARATE [Concomitant]
  11. GENTAMICIN [Concomitant]
  12. GLYCOPYRROLATE [Concomitant]
  13. HYOSCINE [Concomitant]
  14. GLYCOPYRROLATE [Concomitant]
  15. HYOSCINE [Concomitant]
  16. METRONIDAZOLE [Concomitant]
  17. NORMAL SALINE [Concomitant]
  18. PABRINEX [Concomitant]
  19. PARACETAMOL [Concomitant]
  20. PHOSPHATE-SANDOZ [Concomitant]
  21. PIPERACILLIN AND TAZOBACTAM [Concomitant]
  22. SALBUTAMOL [Concomitant]
  23. VORICONAZOLE [Concomitant]

REACTIONS (8)
  - Rash [None]
  - Rash maculo-papular [None]
  - Petechiae [None]
  - Erythema multiforme [None]
  - Stevens-Johnson syndrome [None]
  - Unresponsive to stimuli [None]
  - Tremor [None]
  - Dry mouth [None]
